FAERS Safety Report 6385290-0 (Version None)
Quarter: 2009Q4

REPORT INFORMATION
  Report Type: 
  Country: None (occurrence: None)
  Receive Date: 20091002
  Receipt Date: 20080808
  Transmission Date: 20100525
  Serious: No
  Sender: FDA-Public Use
  Company Number: US-ASTRAZENECA-2008UW16346

PATIENT
  Sex: Female

DRUGS (5)
  1. ARIMIDEX [Suspect]
     Indication: BREAST CANCER
     Route: 048
     Dates: start: 20070801
  2. ADRIAMYCIN PFS [Concomitant]
     Dates: end: 20070101
  3. CYTOXAN [Concomitant]
     Dates: end: 20070101
  4. TAXOL [Concomitant]
     Dates: end: 20070101
  5. RADIATION [Concomitant]
     Dates: end: 20070101

REACTIONS (2)
  - INTESTINAL FUNCTIONAL DISORDER [None]
  - METASTASIS [None]
